FAERS Safety Report 4428265-0 (Version None)
Quarter: 2004Q3

REPORT INFORMATION
  Report Type: 
  Country: None (occurrence: None)
  Receive Date: 20040813
  Receipt Date: 20040803
  Transmission Date: 20050211
  Serious: Yes (Hospitalization, Other)
  Sender: FDA-Public Use
  Company Number: 207457

PATIENT
  Age: 38 Year
  Sex: Female

DRUGS (2)
  1. EFALIZUMAB [Suspect]
     Indication: PSORIASIS
     Dosage: 1 MG/KG, 1/WEEK, SUBCUTANEOUS
     Route: 058
     Dates: start: 20030923, end: 20031209
  2. PLACEBO (EFALIZUMAB) PWDR + SOLVENT, INJECTION SOLN, 125 MG [Suspect]

REACTIONS (3)
  - BRAIN MASS [None]
  - MALAISE [None]
  - TINNITUS [None]
